FAERS Safety Report 6662566-0 (Version None)
Quarter: 2010Q1

REPORT INFORMATION
  Report Type: 
  Country: None (occurrence: None)
  Receive Date: 20100329
  Receipt Date: 20100315
  Transmission Date: 20100710
  Serious: Yes (Other)
  Sender: FDA-Public Use
  Company Number: CAO10000330

PATIENT
  Sex: Female

DRUGS (1)
  1. CREST WHITENING PLUS SCOPE TOOTHPASTE, MINTY FRESH FLAVOR(SODIUM ACID [Suspect]
     Dosage: 1 APPLIC, 1 ONLY, INTRAORAL
     Dates: start: 20100309, end: 20100309

REACTIONS (1)
  - ANAPHYLACTIC SHOCK [None]
